FAERS Safety Report 5400233-1 (Version None)
Quarter: 2007Q3

REPORT INFORMATION
  Report Type: 
  Country: None (occurrence: None)
  Receive Date: 20070727
  Receipt Date: 20070727
  Transmission Date: 20080115
  Serious: Yes (Life-Threatening, Hospitalization, Other)
  Sender: FDA-Public Use
  Company Number: None

PATIENT
  Sex: Male
  Weight: 42.3 kg

DRUGS (1)
  1. ADDERALL XR 30 [Suspect]
     Indication: ATTENTION DEFICIT/HYPERACTIVITY DISORDER
     Dosage: 1X DAILY EVERY DAY PO
     Route: 048
     Dates: start: 20000126, end: 20060114

REACTIONS (3)
  - EPISTAXIS [None]
  - HEADACHE [None]
  - HYPERTENSION [None]
